FAERS Safety Report 8446649-0 (Version None)
Quarter: 2012Q2

REPORT INFORMATION
  Report Type: 
  Country: None (occurrence: None)
  Receive Date: 20120619
  Receipt Date: 20120612
  Transmission Date: 20120825
  Serious: No
  Sender: FDA-Public Use
  Company Number: US-BIOGENIDEC-2012BI015040

PATIENT
  Sex: Female

DRUGS (5)
  1. TYSABRI [Suspect]
     Indication: MULTIPLE SCLEROSIS
     Route: 042
     Dates: start: 20070614, end: 20080811
  2. TYSABRI [Suspect]
     Indication: CROHN'S DISEASE
     Route: 042
     Dates: start: 20070614, end: 20080811
  3. PRIMIDONE [Concomitant]
     Indication: CEREBRAL PALSY
  4. TYSABRI [Suspect]
     Route: 042
     Dates: start: 20081121
  5. TYSABRI [Suspect]
     Route: 042
     Dates: start: 20081121

REACTIONS (8)
  - FALL [None]
  - GAIT DISTURBANCE [None]
  - DYSGRAPHIA [None]
  - LARYNGEAL DISORDER [None]
  - DYSPHAGIA [None]
  - MUSCLE DISORDER [None]
  - IRRITABLE BOWEL SYNDROME [None]
  - ASTHENIA [None]
